FAERS Safety Report 16394139 (Version 1)
Quarter: 2019Q2

REPORT INFORMATION
  Report Type: Spontaneous
  Country: FR (occurrence: FR)
  Receive Date: 20190605
  Receipt Date: 20190605
  Transmission Date: 20190711
  Serious: Yes (Hospitalization, Other)
  Sender: FDA-Public Use
  Company Number: FR-PFIZER INC-2019233294

PATIENT
  Age: 72 Year
  Sex: Male
  Weight: 70 kg

DRUGS (15)
  1. INEXIUM [ESOMEPRAZOLE MAGNESIUM] [Concomitant]
     Active Substance: ESOMEPRAZOLE MAGNESIUM
     Dosage: 1 DF, 1X/DAY
     Route: 048
  2. PARACETAMOL ALMUS [Concomitant]
     Dosage: 8 DF, 1X/DAY (AS NEEDED WHEN IS IN PAIN)
     Route: 048
  3. LASILIX [FUROSEMIDE] [Interacting]
     Active Substance: FUROSEMIDE
     Indication: CARDIAC DISORDER
     Dosage: 2 DF, 1X/DAY
     Route: 048
     Dates: start: 20180711
  4. CORDARONE [Concomitant]
     Active Substance: AMIODARONE HYDROCHLORIDE
     Dosage: 1 DF, 1X/DAY
     Route: 048
  5. SPIRIVA [Concomitant]
     Active Substance: TIOTROPIUM BROMIDE MONOHYDRATE
     Dosage: 1 DF, 1X/DAY
     Route: 055
  6. CITALOPRAM ALMUS [CITALOPRAM HYDROBROMIDE] [Concomitant]
     Dosage: 1 DF, 1X/DAY
     Route: 048
  7. LASILIX SPECIAL [FUROSEMIDE] [Interacting]
     Active Substance: FUROSEMIDE
     Indication: CARDIOMYOPATHY
     Dosage: 0.5 DF, 1X/DAY
     Route: 048
     Dates: start: 20180710, end: 20181108
  8. SERETIDE [Concomitant]
     Active Substance: FLUTICASONE PROPIONATE\SALMETEROL XINAFOATE
     Dosage: 2 DF, 1X/DAY
     Route: 055
  9. UN-ALFA [Concomitant]
     Active Substance: ALFACALCIDOL
     Dosage: 1 DF, 1X/DAY
     Route: 048
  10. ALDACTONE [Suspect]
     Active Substance: SPIRONOLACTONE
     Indication: HYPERTENSION
     Dosage: 1 DF, 1X/DAY
     Route: 048
     Dates: start: 20180710, end: 201810
  11. FOSINOPRIL [Interacting]
     Active Substance: FOSINOPRIL
     Indication: HYPERTENSION
     Dosage: 10 MG, 1X/DAY
     Route: 048
     Dates: end: 201810
  12. IPRATROPIUM AGUETTANT [Concomitant]
     Dosage: 4 DF, 1X/DAY
     Route: 055
  13. TERBUTALINE ARROW [Concomitant]
     Active Substance: TERBUTALINE
     Dosage: 4 DF, 1X/DAY
     Route: 055
  14. LERCANIDIPINE ARROW GENERIQUES [Concomitant]
     Active Substance: LERCANIDIPINE HYDROCHLORIDE
     Dosage: 1 DF, 1X/DAY
     Route: 048
     Dates: start: 20180711
  15. KARDEGIC [Concomitant]
     Active Substance: ASPIRIN DL-LYSINE
     Dosage: 1 DF, 1X/DAY
     Route: 048

REACTIONS (3)
  - Acute kidney injury [Recovered/Resolved]
  - Hyperkalaemia [Recovered/Resolved]
  - Drug interaction [Unknown]

NARRATIVE: CASE EVENT DATE: 201809
